FAERS Safety Report 9958202 (Version 1)
Quarter: 2014Q1

REPORT INFORMATION
  Report Type: Report from Study
  Country: US (occurrence: US)
  Receive Date: 20140304
  Receipt Date: 20140304
  Transmission Date: 20141002
  Serious: No
  Sender: FDA-Public Use
  Company Number: US-ABBVIE-13P-163-1091626-00

PATIENT
  Age: 67 Year
  Sex: Female

DRUGS (5)
  1. HUMIRA [Suspect]
     Indication: PSORIASIS
     Dates: start: 201102
  2. EVISTA [Concomitant]
     Indication: HORMONE REPLACEMENT THERAPY
     Dosage: 60MG DAILY
     Route: 048
  3. PAXIL [Concomitant]
     Indication: ANXIETY
     Dosage: 20MG DAILY
     Route: 048
  4. CALCIUM [Concomitant]
     Indication: OSTEOPOROSIS
     Dosage: DAILY
     Route: 048
  5. CENTRUM SILVER [Concomitant]
     Indication: VITAMIN SUPPLEMENTATION
     Dosage: DAILY
     Route: 048

REACTIONS (2)
  - Tooth extraction [Not Recovered/Not Resolved]
  - Post procedural infection [Not Recovered/Not Resolved]
